FAERS Safety Report 4360731-9 (Version None)
Quarter: 2004Q2

REPORT INFORMATION
  Report Type: 
  Country: None (occurrence: None)
  Receive Date: 20040514
  Receipt Date: 20040510
  Transmission Date: 20050107
  Serious: Yes (Hospitalization)
  Sender: FDA-Public Use
  Company Number: FRWYE061717MAR03

PATIENT
  Age: 40 Year
  Sex: Female

DRUGS (5)
  1. SIROLIMUS (SIROLIMUS, TABLET, 0) [Suspect]
     Indication: PROPHYLAXIS AGAINST TRANSPLANT REJECTION
     Dosage: 8 MG 1X PER 1 DAY; ORAL
     Route: 048
     Dates: start: 20030207, end: 20030314
  2. CELLCEPT [Concomitant]
  3. SOLUPRE (PREDNISOLONE SODIUM SULFOBENZOATE) [Concomitant]
  4. TENORMIN [Concomitant]
  5. TAHOR (ATORVASTATIN) [Concomitant]

REACTIONS (6)
  - CONDITION AGGRAVATED [None]
  - GRAFT LOSS [None]
  - HAPTOGLOBIN DECREASED [None]
  - HYPERTENSION [None]
  - PLATELET COUNT DECREASED [None]
  - THROMBOTIC MICROANGIOPATHY [None]
